FAERS Safety Report 14773716 (Version 4)
Quarter: 2020Q1

REPORT INFORMATION
  Report Type: Spontaneous
  Country: US (occurrence: US)
  Receive Date: 20180418
  Receipt Date: 20200204
  Transmission Date: 20200409
  Serious: Yes (Other)
  Sender: FDA-Public Use
  Company Number: US-ASTRAZENECA-2018SE49449

PATIENT
  Age: 578 Month
  Sex: Female

DRUGS (44)
  1. PRILOSEC OTC [Suspect]
     Active Substance: OMEPRAZOLE MAGNESIUM
     Indication: GASTROOESOPHAGEAL REFLUX DISEASE
     Route: 048
     Dates: start: 201001, end: 201801
  2. PRILOSEC OTC [Suspect]
     Active Substance: OMEPRAZOLE MAGNESIUM
     Indication: GASTROOESOPHAGEAL REFLUX DISEASE
     Route: 048
     Dates: start: 20100101, end: 20161231
  3. VERAPAMIL [Concomitant]
     Active Substance: VERAPAMIL HYDROCHLORIDE
     Route: 065
  4. INSULIN [Concomitant]
     Active Substance: INSULIN NOS
     Route: 065
  5. ELAVIL [Concomitant]
     Active Substance: AMITRIPTYLINE HYDROCHLORIDE
  6. OMNIPAQUE [Concomitant]
     Active Substance: IOHEXOL
  7. NORCO [Concomitant]
     Active Substance: ACETAMINOPHEN\HYDROCODONE BITARTRATE
  8. NEXIUM 24HR [Suspect]
     Active Substance: ESOMEPRAZOLE MAGNESIUM
     Route: 048
     Dates: start: 201001, end: 201801
  9. PREVACID 24 HR [Suspect]
     Active Substance: LANSOPRAZOLE
     Route: 065
     Dates: start: 201001, end: 201801
  10. ATORVASTATIN [Concomitant]
     Active Substance: ATORVASTATIN
     Route: 065
  11. ERGOTAMINE TARTRATE. [Concomitant]
     Active Substance: ERGOTAMINE TARTRATE
     Route: 065
  12. BISACODYL. [Concomitant]
     Active Substance: BISACODYL
  13. DOCUSATE SODIUM. [Concomitant]
     Active Substance: DOCUSATE SODIUM
  14. MAGNESIUM HYDROXIDE. [Concomitant]
     Active Substance: MAGNESIUM HYDROXIDE
  15. MORPHINE [Concomitant]
     Active Substance: MORPHINE
  16. FENTANYL. [Concomitant]
     Active Substance: FENTANYL
  17. SUMATRIPTAN. [Concomitant]
     Active Substance: SUMATRIPTAN
  18. PREVACID [Suspect]
     Active Substance: LANSOPRAZOLE
     Route: 065
     Dates: start: 201001, end: 201801
  19. PROTONIX [Suspect]
     Active Substance: PANTOPRAZOLE SODIUM
     Indication: GASTROOESOPHAGEAL REFLUX DISEASE
     Route: 048
     Dates: start: 20140317
  20. LORAZEPAM. [Concomitant]
     Active Substance: LORAZEPAM
  21. LISINOPRIL. [Concomitant]
     Active Substance: LISINOPRIL
     Indication: HYPERTENSION
     Route: 065
     Dates: start: 20180426
  22. FLEXERIL [Concomitant]
     Active Substance: CYCLOBENZAPRINE HYDROCHLORIDE
  23. CHLORHEXIDINE [Concomitant]
     Active Substance: CHLORHEXIDINE
     Route: 065
  24. GABAPENTIN. [Concomitant]
     Active Substance: GABAPENTIN
  25. PRAVASTATIN. [Concomitant]
     Active Substance: PRAVASTATIN
  26. FAMOTIDINE. [Concomitant]
     Active Substance: FAMOTIDINE
  27. METFORMIN [Concomitant]
     Active Substance: METFORMIN HYDROCHLORIDE
     Indication: DIABETES MELLITUS
     Route: 065
     Dates: start: 20180426
  28. PROTONIX [Suspect]
     Active Substance: PANTOPRAZOLE SODIUM
     Indication: GASTROOESOPHAGEAL REFLUX DISEASE
     Route: 065
     Dates: start: 2010, end: 2016
  29. IBUPROFEN. [Concomitant]
     Active Substance: IBUPROFEN
     Route: 065
  30. TIZANIDINE. [Concomitant]
     Active Substance: TIZANIDINE
  31. GLUCAGON. [Concomitant]
     Active Substance: GLUCAGON
  32. NEXIUM [Suspect]
     Active Substance: ESOMEPRAZOLE MAGNESIUM
     Route: 048
     Dates: start: 201001, end: 201801
  33. PROTONIX [Suspect]
     Active Substance: PANTOPRAZOLE SODIUM
     Indication: GASTROOESOPHAGEAL REFLUX DISEASE
     Route: 065
     Dates: start: 201001, end: 201801
  34. AMLODIPINE [Concomitant]
     Active Substance: AMLODIPINE BESYLATE
     Indication: HYPERTENSION
     Route: 065
     Dates: start: 20180426
  35. CEFAZOLIN [Concomitant]
     Active Substance: CEFAZOLIN
  36. ONDANSETRON [Concomitant]
     Active Substance: ONDANSETRON
     Indication: NAUSEA
     Route: 065
     Dates: start: 20180521
  37. METOPROLOL. [Concomitant]
     Active Substance: METOPROLOL
     Route: 065
  38. DEXILANT [Suspect]
     Active Substance: DEXLANSOPRAZOLE
     Route: 065
     Dates: start: 201001, end: 201801
  39. BOTOX [Concomitant]
     Active Substance: ONABOTULINUMTOXINA
  40. FLAGYL [Concomitant]
     Active Substance: METRONIDAZOLE\METRONIDAZOLE HYDROCHLORIDE
  41. PRILOSEC [Suspect]
     Active Substance: OMEPRAZOLE MAGNESIUM
     Route: 048
     Dates: start: 201001, end: 201801
  42. TORADOL [Concomitant]
     Active Substance: KETOROLAC TROMETHAMINE
  43. EFFEXOR [Concomitant]
     Active Substance: VENLAFAXINE HYDROCHLORIDE
  44. DEPAKOTE [Concomitant]
     Active Substance: DIVALPROEX SODIUM

REACTIONS (3)
  - Renal injury [Unknown]
  - Chronic kidney disease [Unknown]
  - Acute kidney injury [Not Recovered/Not Resolved]

NARRATIVE: CASE EVENT DATE: 201612
